FAERS Safety Report 7656402-3 (Version None)
Quarter: 2011Q3

REPORT INFORMATION
  Report Type: 
  Country: None (occurrence: None)
  Receive Date: 20110804
  Receipt Date: 20110725
  Transmission Date: 20111222
  Serious: Yes (Hospitalization)
  Sender: FDA-Public Use
  Company Number: NL-GLAXOSMITHKLINE-B0712774B

PATIENT
  Sex: Male
  Weight: 84 kg

DRUGS (2)
  1. IFOSFAMIDE [Suspect]
     Indication: NEOPLASM MALIGNANT
     Dates: start: 20110405, end: 20110526
  2. PAZOPANIB [Suspect]
     Indication: NEOPLASM MALIGNANT
     Route: 048
     Dates: start: 20110329, end: 20110608

REACTIONS (3)
  - HYPOKALAEMIA [None]
  - PYREXIA [None]
  - BLOOD CREATININE INCREASED [None]
